FAERS Safety Report 6935268-0 (Version None)
Quarter: 2010Q3

REPORT INFORMATION
  Report Type: 
  Country: None (occurrence: None)
  Receive Date: 20100822
  Receipt Date: 20100715
  Transmission Date: 20110219
  Serious: No
  Sender: FDA-Public Use
  Company Number: US-ALLERGAN-1009265US

PATIENT
  Age: 63 Year
  Sex: Male

DRUGS (5)
  1. COMBIGAN [Suspect]
     Indication: GLAUCOMA
     Dosage: UNK
     Route: 047
     Dates: start: 20100701
  2. EXFORGE [Concomitant]
     Indication: HYPERTENSION
  3. HYDROCHLOROTHIAZIDE [Concomitant]
     Indication: HYPERTENSION
  4. ASPIRIN [Concomitant]
     Indication: CARDIAC DISORDER
  5. VITAMIN D3 [Concomitant]
     Indication: CARDIAC DISORDER

REACTIONS (4)
  - EYE IRRITATION [None]
  - FOREIGN BODY SENSATION IN EYES [None]
  - HEADACHE [None]
  - RHINORRHOEA [None]
